FAERS Safety Report 18761430 (Version 1)
Quarter: 2021Q1

REPORT INFORMATION
  Report Type: Spontaneous
  Country: FR (occurrence: FR)
  Receive Date: 20210120
  Receipt Date: 20210120
  Transmission Date: 20210419
  Serious: Yes (Life-Threatening, Other)
  Sender: FDA-Public Use
  Company Number: FR-GILEAD-2021-0513394

PATIENT
  Age: 24 Year
  Sex: Male

DRUGS (3)
  1. AMBRISENTAN [Suspect]
     Active Substance: AMBRISENTAN
     Indication: PULMONARY ARTERIAL HYPERTENSION
  2. AMBRISENTAN [Suspect]
     Active Substance: AMBRISENTAN
     Indication: VENOOCCLUSIVE DISEASE
     Dosage: 10 MG, QD
     Route: 048
     Dates: start: 201901
  3. TADALAFIL. [Suspect]
     Active Substance: TADALAFIL
     Indication: VENOOCCLUSIVE DISEASE
     Dosage: 40 MG, QD
     Route: 048
     Dates: start: 201808

REACTIONS (1)
  - Angioedema [Recovered/Resolved]
